FAERS Safety Report 12525645 (Version 2)
Quarter: 2016Q3

REPORT INFORMATION
  Report Type: Spontaneous
  Country: JP (occurrence: JP)
  Receive Date: 20160705
  Receipt Date: 20160722
  Transmission Date: 20161109
  Serious: Yes (Hospitalization, Other)
  Sender: FDA-Public Use
  Company Number: JP-AMGEN-JPNSP2016086795

PATIENT
  Age: 65 Year
  Sex: Female
  Weight: 54 kg

DRUGS (52)
  1. ADRIACIN [Suspect]
     Active Substance: DOXORUBICIN HYDROCHLORIDE
     Indication: BREAST CANCER
     Dosage: 360 MG, UNK
     Route: 041
     Dates: start: 20151221, end: 20151221
  2. ENDOXAN                            /00021101/ [Suspect]
     Active Substance: CYCLOPHOSPHAMIDE
     Dosage: 3600 MG, UNK
     Route: 041
     Dates: start: 20160104, end: 20160104
  3. GRANISETRON [Concomitant]
     Active Substance: GRANISETRON
     Dosage: 3 MG, 1X/2WEEKS
     Route: 041
     Dates: start: 20151221, end: 20160201
  4. SEISHOKU [Concomitant]
     Active Substance: SODIUM CHLORIDE
     Dosage: 10 ML, 1X/2WEEKS
     Route: 041
     Dates: start: 20151221, end: 20160201
  5. EMEND [Concomitant]
     Active Substance: APREPITANT
     Dosage: 80 MG, QD
     Route: 048
     Dates: start: 20160118, end: 20160119
  6. SENNA [Concomitant]
     Active Substance: SENNA LEAF\SENNOSIDES\SENNOSIDES A AND B
     Dosage: 0.5 G, QD
     Route: 048
     Dates: start: 20160118, end: 20160124
  7. MYSER                              /00115501/ [Concomitant]
     Active Substance: CYCLOSERINE
     Dosage: 10 G, UNK
     Route: 061
     Dates: start: 20160229, end: 20160229
  8. ENDOXAN                            /00021101/ [Suspect]
     Active Substance: CYCLOPHOSPHAMIDE
     Dosage: 3600 MG, UNK
     Route: 041
     Dates: start: 20160118, end: 20160118
  9. DOCETAXEL. [Suspect]
     Active Substance: DOCETAXEL
     Indication: BREAST CANCER
     Dosage: 220 MG, UNK
     Route: 041
     Dates: start: 20160215
  10. SEISHOKU [Concomitant]
     Active Substance: SODIUM CHLORIDE
     Dosage: 250 ML, 1X/2WEEKS
     Route: 041
     Dates: start: 20151221, end: 20160229
  11. DECADRON [Concomitant]
     Active Substance: DEXAMETHASONE
     Dosage: 4 MG, BID
     Route: 048
     Dates: start: 20160229, end: 20160302
  12. EMEND [Concomitant]
     Active Substance: APREPITANT
     Dosage: 80 MG, QD
     Route: 048
     Dates: start: 20151221, end: 20151222
  13. MUCOSTA [Concomitant]
     Active Substance: REBAMIPIDE
     Dosage: 100 MG, QD
     Route: 048
     Dates: start: 20160215, end: 20160224
  14. G-LASTA [Suspect]
     Active Substance: PEGFILGRASTIM
     Dosage: 3.6 MG, 1X/2WEEKS
     Route: 058
     Dates: start: 20160105, end: 20160105
  15. G-LASTA [Suspect]
     Active Substance: PEGFILGRASTIM
     Dosage: 3.6 MG, 1X/2WEEKS
     Route: 058
     Dates: start: 20160301, end: 20160301
  16. ADRIACIN [Suspect]
     Active Substance: DOXORUBICIN HYDROCHLORIDE
     Dosage: 360 MG, UNK
     Route: 041
     Dates: start: 20160118, end: 20160118
  17. ISOTONIC SODIUM CHLORIDE SOLUTION [Concomitant]
     Active Substance: SODIUM CHLORIDE
     Dosage: 50 ML, 1X/2WEEKS
     Route: 041
     Dates: start: 20151221, end: 20160201
  18. DECADRON [Concomitant]
     Active Substance: DEXAMETHASONE
     Dosage: 4 MG, BID
     Route: 048
     Dates: start: 20151221, end: 20151223
  19. EMEND [Concomitant]
     Active Substance: APREPITANT
     Dosage: 80 MG, QD
     Route: 048
     Dates: start: 20160201, end: 20160202
  20. LOXOPROFEN SODIUM HYDRATE [Concomitant]
     Active Substance: LOXOPROFEN SODIUM DIHYDRATE
     Dosage: 60 MG, QD
     Route: 048
     Dates: start: 20160215, end: 20160224
  21. G-LASTA [Suspect]
     Active Substance: PEGFILGRASTIM
     Dosage: 3.6 MG, 1X/2WEEKS
     Route: 058
     Dates: start: 20160202, end: 20160202
  22. G-LASTA [Suspect]
     Active Substance: PEGFILGRASTIM
     Dosage: 3.6 MG, 1X/2WEEKS
     Route: 058
     Dates: start: 20160216, end: 20160216
  23. ADRIACIN [Suspect]
     Active Substance: DOXORUBICIN HYDROCHLORIDE
     Dosage: 360 MG, UNK
     Route: 041
     Dates: start: 20160201, end: 20160201
  24. ENDOXAN                            /00021101/ [Suspect]
     Active Substance: CYCLOPHOSPHAMIDE
     Indication: BREAST CANCER
     Dosage: 3600 MG, UNK
     Route: 041
     Dates: start: 20151221, end: 20151221
  25. DOCETAXEL. [Suspect]
     Active Substance: DOCETAXEL
     Dosage: 220 MG, UNK
     Route: 041
     Dates: start: 20160229, end: 20160229
  26. DECADRON [Concomitant]
     Active Substance: DEXAMETHASONE
     Dosage: 6.6 MG, 1X/2WEEKS
     Route: 041
     Dates: start: 20151221, end: 20160229
  27. DECADRON [Concomitant]
     Active Substance: DEXAMETHASONE
     Dosage: 4 MG, BID
     Route: 048
     Dates: start: 20160215, end: 20160217
  28. PRIMPERAN [Concomitant]
     Active Substance: METOCLOPRAMIDE HYDROCHLORIDE
     Dosage: 5 MG, TID
     Route: 048
     Dates: start: 20151221, end: 20151225
  29. EMEND [Concomitant]
     Active Substance: APREPITANT
     Dosage: 80 MG, QD
     Route: 048
     Dates: start: 20160104, end: 20160105
  30. SENNA [Concomitant]
     Active Substance: SENNA LEAF\SENNOSIDES\SENNOSIDES A AND B
     Dosage: 0.5 G, QD
     Route: 048
     Dates: start: 20160104, end: 20160110
  31. NIFEDIPINE. [Concomitant]
     Active Substance: NIFEDIPINE
     Dosage: 40 MG, QD
     Route: 048
     Dates: start: 20160126, end: 20160305
  32. G-LASTA [Suspect]
     Active Substance: PEGFILGRASTIM
     Indication: COLONY STIMULATING FACTOR PROPHYLAXIS
     Dosage: 3.6 MG, 1X/2WEEKS
     Route: 058
     Dates: start: 20151222, end: 20151222
  33. ADRIACIN [Suspect]
     Active Substance: DOXORUBICIN HYDROCHLORIDE
     Dosage: 360 MG, UNK
     Route: 041
     Dates: start: 20160104, end: 20160104
  34. DECADRON [Concomitant]
     Active Substance: DEXAMETHASONE
     Dosage: 4 MG, BID
     Route: 048
     Dates: start: 20160201, end: 20160203
  35. PRIMPERAN [Concomitant]
     Active Substance: METOCLOPRAMIDE HYDROCHLORIDE
     Dosage: 5 MG, TID
     Route: 048
     Dates: start: 20160104, end: 20160108
  36. VOLTAREN [Concomitant]
     Active Substance: DICLOFENAC SODIUM
     Dosage: 50 MG, 6X/DAY
     Route: 054
     Dates: start: 20151221, end: 20151221
  37. CARDENALIN [Concomitant]
     Active Substance: DOXAZOSIN MESYLATE
     Dosage: 2 MG, QD
     Route: 048
     Dates: start: 20151222, end: 20160111
  38. CRESTOR [Concomitant]
     Active Substance: ROSUVASTATIN CALCIUM
     Dosage: 2.5 MG, QD
     Route: 048
     Dates: start: 20151222, end: 20160111
  39. LOXOPROFEN SODIUM HYDRATE [Concomitant]
     Active Substance: LOXOPROFEN SODIUM DIHYDRATE
     Dosage: 50 MG, QD
     Route: 048
     Dates: start: 20160229, end: 20160305
  40. MUCOSTA [Concomitant]
     Active Substance: REBAMIPIDE
     Dosage: 100 MG, QD
     Route: 048
     Dates: start: 20160229, end: 20160305
  41. HIRUDOID                           /00723701/ [Concomitant]
     Active Substance: PENTOSAN POLYSULFATE SODIUM
     Dosage: 50 G, UNK
     Route: 061
     Dates: start: 20160215, end: 20160215
  42. ENDOXAN                            /00021101/ [Suspect]
     Active Substance: CYCLOPHOSPHAMIDE
     Dosage: 3600 MG, UNK
     Route: 041
     Dates: start: 20160201, end: 20160201
  43. DECADRON [Concomitant]
     Active Substance: DEXAMETHASONE
     Dosage: 4 MG, BID
     Route: 048
     Dates: start: 20160104, end: 20160106
  44. SENNA [Concomitant]
     Active Substance: SENNA LEAF\SENNOSIDES\SENNOSIDES A AND B
     Dosage: 0.5 G, QD
     Route: 048
     Dates: start: 20151221, end: 20151227
  45. CIPROXAN                           /00697202/ [Concomitant]
     Active Substance: CIPROFLOXACIN
     Dosage: 200 MG, TID
     Route: 048
     Dates: start: 20151221, end: 20151223
  46. CRESTOR [Concomitant]
     Active Substance: ROSUVASTATIN CALCIUM
     Dosage: 2.5 MG, QD
     Route: 048
     Dates: start: 20160126, end: 20160305
  47. HIRUDOID                           /00723701/ [Concomitant]
     Active Substance: PENTOSAN POLYSULFATE SODIUM
     Dosage: 50 G, UNK
     Route: 061
     Dates: start: 20160229, end: 20160229
  48. MYSER [Concomitant]
     Active Substance: DIFLUPREDNATE
     Dosage: 10 G, UNK
     Route: 061
     Dates: start: 20160229, end: 20160229
  49. G-LASTA [Suspect]
     Active Substance: PEGFILGRASTIM
     Dosage: 3.6 MG, 1X/2WEEKS
     Route: 058
     Dates: start: 20160119, end: 20160119
  50. DECADRON [Concomitant]
     Active Substance: DEXAMETHASONE
     Dosage: 1.65 MG, BID
     Route: 041
     Dates: start: 20151221, end: 20160201
  51. SEISHOKU [Concomitant]
     Active Substance: SODIUM CHLORIDE
     Dosage: 100 ML, 1X/2WEEKS
     Route: 041
     Dates: start: 20160215, end: 20160229
  52. DECADRON [Concomitant]
     Active Substance: DEXAMETHASONE
     Dosage: 4 MG, BID
     Route: 048
     Dates: start: 20160118, end: 20160120

REACTIONS (3)
  - Chemotherapy [Unknown]
  - Cerebral infarction [Recovered/Resolved]
  - Interstitial lung disease [Recovered/Resolved]

NARRATIVE: CASE EVENT DATE: 20151224
